FAERS Safety Report 4767124-0 (Version None)
Quarter: 2005Q3

REPORT INFORMATION
  Report Type: 
  Country: None (occurrence: None)
  Receive Date: 20050909
  Receipt Date: 20050825
  Transmission Date: 20060218
  Serious: Yes (Hospitalization)
  Sender: FDA-Public Use
  Company Number: 2005US000016

PATIENT
  Age: 65 Year
  Sex: Female
  Weight: 42.7 kg

DRUGS (4)
  1. TACROLIMUS CAPSULES (TACROLIMUS CAPSULES) CAPSULE [Suspect]
     Indication: RENAL TRANSPLANT
     Dosage: 3.00 MG, ORAL
     Route: 048
     Dates: start: 20031022, end: 20041231
  2. CELLCEPT [Concomitant]
  3. PREDNISONE [Concomitant]
  4. RAPAMUNE [Concomitant]

REACTIONS (5)
  - ABDOMINAL PAIN LOWER [None]
  - BK VIRUS INFECTION [None]
  - KIDNEY TRANSPLANT REJECTION [None]
  - POLYOMAVIRUS INTERSTITIAL NEPHRITIS [None]
  - RENAL IMPAIRMENT [None]
